FAERS Safety Report 5121058-0 (Version None)
Quarter: 2006Q4

REPORT INFORMATION
  Report Type: 
  Country: None (occurrence: None)
  Receive Date: 20061002
  Receipt Date: 20060913
  Transmission Date: 20070319
  Serious: Yes (Hospitalization, Other)
  Sender: FDA-Public Use
  Company Number: S06-ESP-03094-01

PATIENT
  Age: 70 Year
  Sex: Female
  Weight: 70 kg

DRUGS (6)
  1. CIPRALEX (ESCITALOPRAM) [Suspect]
     Indication: ANXIETY
     Dosage: 20 MG QD PO
     Route: 048
     Dates: end: 20060628
  2. CIPRALEX (ESCITALOPRAM) [Suspect]
     Indication: DEPRESSION
     Dosage: 20 MG QD PO
     Route: 048
     Dates: end: 20060628
  3. ZOLPIDEM TARTRATE [Concomitant]
  4. ACETAMINOPHEN [Concomitant]
  5. LANSOPRAZOLE [Concomitant]
  6. LACTULOSE [Concomitant]

REACTIONS (4)
  - CYTOMEGALOVIRUS INFECTION [None]
  - IDIOPATHIC THROMBOCYTOPENIC PURPURA [None]
  - IRON DEFICIENCY ANAEMIA [None]
  - VIRAL INFECTION [None]
